FAERS Safety Report 7781900-1 (Version None)
Quarter: 2011Q3

REPORT INFORMATION
  Report Type: 
  Country: None (occurrence: None)
  Receive Date: 20110927
  Receipt Date: 20110920
  Transmission Date: 20111222
  Serious: Yes (Hospitalization, Other)
  Sender: FDA-Public Use
  Company Number: US-AMGEN-USASP2011048506

PATIENT
  Sex: Female

DRUGS (1)
  1. ENBREL [Suspect]
     Indication: RHEUMATOID ARTHRITIS
     Dosage: 25 MG, 2 TIMES/WK
     Dates: start: 19990101

REACTIONS (5)
  - OSTEOARTHRITIS [None]
  - CONTUSION [None]
  - ARTHRITIS INFECTIVE [None]
  - LACERATION [None]
  - INJECTION SITE HAEMATOMA [None]
